FAERS Safety Report 5085766-2 (Version None)
Quarter: 2006Q3

REPORT INFORMATION
  Report Type: 
  Country: None (occurrence: None)
  Receive Date: 20060817
  Receipt Date: 20060802
  Transmission Date: 20061208
  Serious: Yes (Other)
  Sender: FDA-Public Use
  Company Number: 2006096144

PATIENT
  Sex: Female
  Weight: 68.0396 kg

DRUGS (4)
  1. CELEBREX [Suspect]
     Indication: TENDONITIS
     Dosage: 200 MG (200 MG, 1 IN 1 D)
     Dates: start: 20060301
  2. LYRICA [Suspect]
     Indication: NEURALGIA
     Dosage: 100 MG (100 MG, 1 IN 1 D)
     Dates: start: 20060401
  3. VALSARTAN [Concomitant]
  4. SULAR [Concomitant]

REACTIONS (10)
  - ARTHROPATHY [None]
  - BURNING SENSATION [None]
  - DISORIENTATION [None]
  - DIZZINESS [None]
  - DONOR SITE COMPLICATION [None]
  - DRUG DOSE OMISSION [None]
  - JOINT SWELLING [None]
  - NEURALGIA [None]
  - SOMNOLENCE [None]
  - SPEECH DISORDER [None]
